FAERS Safety Report 7322695-5 (Version None)
Quarter: 2011Q1

REPORT INFORMATION
  Report Type: 
  Country: None (occurrence: None)
  Receive Date: 20110301
  Receipt Date: 20110224
  Transmission Date: 20110831
  Serious: No
  Sender: FDA-Public Use
  Company Number: US-PFIZER INC-2011041179

PATIENT
  Sex: Female
  Weight: 56.7 kg

DRUGS (3)
  1. ALENDRONATE SODIUM [Concomitant]
     Indication: OSTEOPOROSIS
     Dosage: 35 MG, UNK
     Dates: start: 20070101
  2. PRISTIQ [Suspect]
     Indication: ANXIETY
     Dosage: 50 MG, 1X/DAY
     Route: 048
     Dates: start: 20110215
  3. ALENDRONATE SODIUM [Concomitant]
     Indication: OSTEOPENIA

REACTIONS (2)
  - DYSURIA [None]
  - BURNING SENSATION [None]
